FAERS Safety Report 8895574 (Version 3)
Quarter: 2012Q4

REPORT INFORMATION
  Report Type: 
  Country: FR (occurrence: FR)
  Receive Date: 20121108
  Receipt Date: 20121207
  Transmission Date: 20130627
  Serious: Yes (Other)
  Sender: FDA-Public Use
  Company Number: FR-GLAXOSMITHKLINE-B0842136A

PATIENT
  Age: 86 Year
  Sex: Male

DRUGS (3)
  1. DERMOVAL [Suspect]
     Indication: PRODUCT USED FOR UNKNOWN INDICATION
     Dosage: 1UNIT Single dose
     Route: 031
     Dates: start: 20121031, end: 20121031
  2. DACRYOSERUM [Concomitant]
     Route: 065
  3. ARTIFICIAL TEARS [Concomitant]
     Route: 047

REACTIONS (5)
  - Ulcerative keratitis [Recovering/Resolving]
  - Eye burns [Recovering/Resolving]
  - Incorrect route of drug administration [Unknown]
  - Wrong drug administered [Unknown]
  - Medication error [Unknown]
